FAERS Safety Report 15025538 (Version 1)
Quarter: 2018Q2

REPORT INFORMATION
  Report Type: Spontaneous
  Country: US (occurrence: US)
  Receive Date: 20180618
  Receipt Date: 20180618
  Transmission Date: 20180711
  Serious: Yes (Other)
  Sender: FDA-Public Use
  Company Number: US-ALLERGAN-1830624US

PATIENT
  Age: 17 Year
  Sex: Male

DRUGS (1)
  1. METRONIDAZOLE UNK [Suspect]
     Active Substance: METRONIDAZOLE
     Indication: PRODUCT USED FOR UNKNOWN INDICATION
     Route: 065

REACTIONS (2)
  - Ataxia [Recovering/Resolving]
  - Mental status changes [Recovering/Resolving]
